FAERS Safety Report 21238191 (Version 1)
Quarter: 2022Q3

REPORT INFORMATION
  Report Type: Spontaneous
  Country: US (occurrence: US)
  Receive Date: 20220822
  Receipt Date: 20220822
  Transmission Date: 20221026
  Serious: No
  Sender: FDA-Public Use
  Company Number: US-CELGENE-USA-20220206130

PATIENT
  Age: 87 Year
  Sex: Female

DRUGS (3)
  1. POMALYST [Suspect]
     Active Substance: POMALIDOMIDE
     Indication: Plasma cell myeloma
     Dosage: 3 MILLIGRAM
     Route: 048
     Dates: start: 202108
  2. POMALYST [Suspect]
     Active Substance: POMALIDOMIDE
     Dosage: FORM STRENGTH : 4 ?4 MILLIGRAM
     Route: 048
     Dates: start: 20211028
  3. POMALYST [Suspect]
     Active Substance: POMALIDOMIDE
     Dosage: DAILY 21 DAYS
     Route: 048
     Dates: start: 20211025

REACTIONS (2)
  - Fatigue [Unknown]
  - Alopecia [Not Recovered/Not Resolved]

NARRATIVE: CASE EVENT DATE: 20210901
